FAERS Safety Report 20801258 (Version 3)
Quarter: 2022Q2

REPORT INFORMATION
  Report Type: Spontaneous
  Country: US (occurrence: US)
  Receive Date: 20220509
  Receipt Date: 20220526
  Transmission Date: 20220721
  Serious: No
  Sender: FDA-Public Use
  Company Number: US-LUPIN PHARMACEUTICALS INC.-2022-06529

PATIENT
  Age: 68 Year
  Sex: Female
  Weight: 77.11 kg

DRUGS (1)
  1. ESZOPICLONE [Suspect]
     Active Substance: ESZOPICLONE
     Indication: Sleep disorder
     Dosage: 1 DOSAGE FORM, QD (DURING BEDTIME)
     Route: 065
     Dates: start: 20220408

REACTIONS (5)
  - Drug ineffective [Unknown]
  - Product substitution issue [Unknown]
  - Product colour issue [Unknown]
  - Poor quality product administered [Unknown]
  - No adverse event [Unknown]

NARRATIVE: CASE EVENT DATE: 20220408
